FAERS Safety Report 9155317 (Version 1)
Quarter: 2013Q1

REPORT INFORMATION
  Report Type: Report from Study
  Country: NL (occurrence: NL)
  Receive Date: 20130311
  Receipt Date: 20130311
  Transmission Date: 20140127
  Serious: Yes (Hospitalization)
  Sender: FDA-Public Use
  Company Number: NL-ROCHE-1200490

PATIENT
  Age: 37 Year
  Sex: Male

DRUGS (1)
  1. PEG-INTERFERON ALFA 2A [Suspect]
     Indication: CHRONIC HEPATITIS B
     Dosage: LAST DOSE RECIEVED ON 08/FEB/2013
     Route: 058
     Dates: start: 20120629, end: 20130215

REACTIONS (1)
  - Appendicitis perforated [Unknown]
